FAERS Safety Report 9313684 (Version 1)
Quarter: 2013Q2

REPORT INFORMATION
  Report Type: Spontaneous
  Country: IT (occurrence: IT)
  Receive Date: 20130529
  Receipt Date: 20130529
  Transmission Date: 20140414
  Serious: Yes (Other)
  Sender: FDA-Public Use
  Company Number: IT-RANBAXY-2013R1-69353

PATIENT
  Sex: Male

DRUGS (1)
  1. ACICLOVIR [Suspect]
     Indication: PRODUCT USED FOR UNKNOWN INDICATION
     Route: 065

REACTIONS (3)
  - Anaphylactic reaction [Recovering/Resolving]
  - Dysphonia [Recovering/Resolving]
  - Palatal oedema [Recovering/Resolving]
